FAERS Safety Report 9514731 (Version 1)
Quarter: 2013Q1

REPORT INFORMATION
  Report Type: Spontaneous
  Country: US (occurrence: None)
  Receive Date: 20130305
  Receipt Date: 20130305
  Transmission Date: 20140127
  Serious: Yes (Hospitalization, Other)
  Sender: FDA-Public Use
  Company Number: 163-21880-12112821

PATIENT
  Age: 79 Year
  Sex: Male

DRUGS (3)
  1. REVLIMID [Suspect]
     Indication: PLASMA CELL MYELOMA
     Dosage: 10 MG, 28 IN 28 D, PO
     Route: 048
     Dates: start: 20121112, end: 20121116
  2. VIDAZA [Suspect]
     Indication: MYELODYSPLASTIC SYNDROME
  3. BENADRYL (BENADRYL PLUS) (UNKNOWN) [Concomitant]

REACTIONS (4)
  - Swelling face [None]
  - Swelling [None]
  - Pruritus [None]
  - Pain [None]
